FAERS Safety Report 12438202 (Version 2)
Quarter: 2017Q2

REPORT INFORMATION
  Report Type: Report from Study
  Country: DK (occurrence: DK)
  Receive Date: 20160606
  Receipt Date: 20170626
  Transmission Date: 20170830
  Serious: Yes (Hospitalization)
  Sender: FDA-Public Use
  Company Number: PHHO2016DK008032

PATIENT
  Age: 7 Year
  Sex: Female

DRUGS (7)
  1. BONYL [Concomitant]
     Active Substance: NAPROXEN
     Indication: BACK PAIN
     Dosage: 250 MG, QD
     Route: 065
     Dates: start: 20160503
  2. LAXOBERAL [Concomitant]
     Active Substance: SODIUM PICOSULFATE
     Indication: CONSTIPATION
     Dosage: 5 MG, QD
     Route: 065
  3. EVEROLIMUS [Suspect]
     Active Substance: EVEROLIMUS
     Indication: GLIOMA
     Dosage: 5 MG/M2, ONCE/SINGLE
     Route: 048
     Dates: start: 20160404
  4. ONDANSETRON [Concomitant]
     Active Substance: ONDANSETRON
     Indication: NAUSEA
     Dosage: 8 MG, QD
     Route: 065
     Dates: start: 201603
  5. PREDNISONE. [Concomitant]
     Active Substance: PREDNISONE
     Indication: PRODUCT USED FOR UNKNOWN INDICATION
     Dosage: 25 MG, QD
     Route: 065
     Dates: start: 20160401
  6. OMESTAD [Concomitant]
     Indication: GASTRIC PH INCREASED
     Dosage: 10 MG, QD
     Route: 048
     Dates: start: 201603
  7. AMOXICILLIN. [Concomitant]
     Active Substance: AMOXICILLIN
     Indication: URINARY TRACT INFECTION
     Dosage: 1500 MG, QD
     Route: 065
     Dates: start: 20160517

REACTIONS (2)
  - Hemiplegia [Recovered/Resolved with Sequelae]
  - Radiation necrosis [Recovered/Resolved with Sequelae]

NARRATIVE: CASE EVENT DATE: 20160524
